FAERS Safety Report 12837159 (Version 1)
Quarter: 2016Q4

REPORT INFORMATION
  Report Type: Spontaneous
  Country: US (occurrence: US)
  Receive Date: 20161011
  Receipt Date: 20161011
  Transmission Date: 20170207
  Serious: Yes (Hospitalization, Disabling)
  Sender: FDA-Public Use
  Company Number: US-TEVA-698322USA

PATIENT
  Age: 54 Year
  Sex: Female

DRUGS (2)
  1. CIPROFLOXACIN. [Suspect]
     Active Substance: CIPROFLOXACIN
     Indication: BRONCHITIS
  2. CIPROFLOXACIN. [Suspect]
     Active Substance: CIPROFLOXACIN
     Indication: OTITIS MEDIA
     Route: 065

REACTIONS (22)
  - Tendon rupture [Unknown]
  - Tarsal tunnel syndrome [Unknown]
  - Sensorimotor disorder [Unknown]
  - Skin disorder [Unknown]
  - Small fibre neuropathy [Unknown]
  - Fatigue [Unknown]
  - Cardiovascular disorder [Unknown]
  - Injury [Unknown]
  - Paraesthesia [Unknown]
  - Endocrine disorder [Unknown]
  - Connective tissue disorder [Unknown]
  - Burning sensation [Unknown]
  - Neuropsychiatric syndrome [Unknown]
  - Nutritional condition abnormal [Unknown]
  - Respiratory disorder [Unknown]
  - Mental status changes [Unknown]
  - Depression [Unknown]
  - Pain [Unknown]
  - Neuropathy peripheral [Unknown]
  - Amnesia [Unknown]
  - Anxiety [Unknown]
  - Neuromyopathy [Unknown]
